FAERS Safety Report 7589971-2 (Version None)
Quarter: 2011Q3

REPORT INFORMATION
  Report Type: 
  Country: None (occurrence: None)
  Receive Date: 20110705
  Receipt Date: 20110610
  Transmission Date: 20111222
  Serious: Yes (Hospitalization)
  Sender: FDA-Public Use
  Company Number: A0874947A

PATIENT
  Age: 62 Year
  Sex: Male
  Weight: 92.3 kg

DRUGS (5)
  1. INSULIN [Concomitant]
  2. LANOXIN [Concomitant]
  3. ZOCOR [Concomitant]
  4. VIOXX [Concomitant]
  5. AVANDIA [Suspect]
     Dosage: 8MG PER DAY
     Route: 048
     Dates: start: 19991027, end: 20070101

REACTIONS (4)
  - CARDIAC FAILURE CONGESTIVE [None]
  - MUSCLE SPASMS [None]
  - FATIGUE [None]
  - LOSS OF LIBIDO [None]
